FAERS Safety Report 12356129 (Version 1)
Quarter: 2016Q2

REPORT INFORMATION
  Report Type: Report from Study
  Country: US (occurrence: US)
  Receive Date: 20160511
  Receipt Date: 20160511
  Transmission Date: 20160815
  Serious: No
  Sender: FDA-Public Use
  Company Number: US-MDT-ADR-2016-00443

PATIENT
  Age: 35 Year
  Sex: Female

DRUGS (14)
  1. DILAUDID [Suspect]
     Active Substance: HYDROMORPHONE HYDROCHLORIDE
     Dosage: 349.93 MCG/DAY
     Route: 037
  2. BACLOFEN. [Suspect]
     Active Substance: BACLOFEN
     Dosage: 139.97 MCG/DAY
     Route: 037
  3. HYDROCODONE [Suspect]
     Active Substance: HYDROCODONE
  4. BUPIVACAINE. [Suspect]
     Active Substance: BUPIVACAINE
     Dosage: 5.000 MG/DAY
     Route: 037
     Dates: start: 20160202
  5. CLONIDINE. [Suspect]
     Active Substance: CLONIDINE
     Dosage: 34.993 MCG/DAY
     Route: 037
  6. CLONIDINE. [Suspect]
     Active Substance: CLONIDINE
     Dosage: 62.50 MCG/DAY
     Route: 037
     Dates: start: 20160202
  7. BACLOFEN. [Suspect]
     Active Substance: BACLOFEN
     Route: 048
  8. TYLENOL WITH CODEINE [Suspect]
     Active Substance: ACETAMINOPHEN\CODEINE PHOSPHATE
  9. NUCYNTA ER [Suspect]
     Active Substance: TAPENTADOL HYDROCHLORIDE
  10. NUCYNTA [Suspect]
     Active Substance: TAPENTADOL HYDROCHLORIDE
  11. TIZANIDINE. [Suspect]
     Active Substance: TIZANIDINE
  12. BUPIVACAINE. [Suspect]
     Active Substance: BUPIVACAINE
     Dosage: 7.4186 MG/DAY
     Route: 037
  13. DILAUDID [Suspect]
     Active Substance: HYDROMORPHONE HYDROCHLORIDE
     Dosage: 0.2500 MG/DAY
     Route: 037
     Dates: start: 20160202
  14. BACLOFEN. [Suspect]
     Active Substance: BACLOFEN
     Dosage: 124.99 MCG/DAY
     Route: 037
     Dates: start: 20160202

REACTIONS (5)
  - Hypoaesthesia [Unknown]
  - Medical device site pain [Unknown]
  - Dizziness [Unknown]
  - Agitation [Unknown]
  - Adverse drug reaction [Unknown]

NARRATIVE: CASE EVENT DATE: 20160202
